FAERS Safety Report 23552154 (Version 1)
Quarter: 2024Q1

REPORT INFORMATION
  Report Type: Spontaneous
  Country: GB (occurrence: GB)
  Receive Date: 20240222
  Receipt Date: 20240222
  Transmission Date: 20240409
  Serious: Yes (Other)
  Sender: FDA-Public Use
  Company Number: None

PATIENT
  Age: 4 Day
  Sex: Male
  Weight: 80 kg

DRUGS (2)
  1. AMLODIPINE [Suspect]
     Active Substance: AMLODIPINE BESYLATE
     Route: 065
  2. OLMESARTAN [Suspect]
     Active Substance: OLMESARTAN
     Route: 065

REACTIONS (2)
  - Myalgia [Recovering/Resolving]
  - Neuralgia [Not Recovered/Not Resolved]
